FAERS Safety Report 14648313 (Version 1)
Quarter: 2018Q1

REPORT INFORMATION
  Report Type: Spontaneous
  Country: US (occurrence: US)
  Receive Date: 20180316
  Receipt Date: 20180316
  Transmission Date: 20180509
  Serious: Yes (Other)
  Sender: FDA-Public Use
  Company Number: US-REGENERON PHARMACEUTICALS, INC.-2018-11464

PATIENT

DRUGS (2)
  1. EYLEA [Suspect]
     Active Substance: AFLIBERCEPT
     Indication: DIABETIC RETINAL OEDEMA
     Dosage: 2 MG, 6 WEEKS
     Route: 031
     Dates: start: 20170331, end: 20180124
  2. EYLEA [Suspect]
     Active Substance: AFLIBERCEPT
     Dosage: 2 MG, 6 WEEKS, LAST DOSE PRIOR TO THE EVENT
     Route: 031
     Dates: start: 20171115, end: 20171115

REACTIONS (1)
  - Brain stem glioma [Unknown]

NARRATIVE: CASE EVENT DATE: 20180209
